FAERS Safety Report 20321561 (Version 1)
Quarter: 2022Q1

REPORT INFORMATION
  Report Type: Spontaneous
  Country: US (occurrence: None)
  Receive Date: 20220110
  Receipt Date: 20220110
  Transmission Date: 20220424
  Serious: Yes (Other)
  Sender: FDA-Public Use
  Company Number: None

PATIENT
  Age: 72 Year
  Sex: Female

DRUGS (12)
  1. BENLYSTA [Suspect]
     Active Substance: BELIMUMAB
  2. BENLYSTA [Suspect]
     Active Substance: BELIMUMAB
  3. ASPIRIN [Concomitant]
     Active Substance: ASPIRIN
  4. VITAMINS [Concomitant]
     Active Substance: VITAMINS
  5. AMLODIPINE [Concomitant]
     Active Substance: AMLODIPINE BESYLATE
  6. CYMBALTA [Concomitant]
     Active Substance: DULOXETINE HYDROCHLORIDE
  7. ZETIA [Concomitant]
     Active Substance: EZETIMIBE
  8. LOSARTAN [Concomitant]
     Active Substance: LOSARTAN
  9. HYDROXYCHLOROQUINE [Concomitant]
     Active Substance: HYDROXYCHLOROQUINE
  10. RANEXA [Concomitant]
     Active Substance: RANOLAZINE
  11. CRESTOR [Concomitant]
     Active Substance: ROSUVASTATIN CALCIUM
  12. MIDODRINE [Concomitant]
     Active Substance: MIDODRINE

REACTIONS (2)
  - Pruritus [None]
  - Anxiety [None]

NARRATIVE: CASE EVENT DATE: 20211230
